FAERS Safety Report 15065221 (Version 2)
Quarter: 2018Q3

REPORT INFORMATION
  Report Type: Spontaneous
  Country: JP (occurrence: JP)
  Receive Date: 20180626
  Receipt Date: 20180911
  Transmission Date: 20181010
  Serious: Yes (Hospitalization)
  Sender: FDA-Public Use
  Company Number: JP-ROCHE-2144958

PATIENT
  Age: 57 Year
  Sex: Male
  Weight: 62 kg

DRUGS (4)
  1. ACTONEL [Concomitant]
     Active Substance: RISEDRONATE SODIUM
     Route: 065
     Dates: start: 20151225
  2. PREDNISOLONE. [Concomitant]
     Active Substance: PREDNISOLONE
     Route: 065
     Dates: start: 20151127
  3. ACTEMRA [Suspect]
     Active Substance: TOCILIZUMAB
     Indication: CASTLEMAN^S DISEASE
     Route: 041
     Dates: start: 20150824, end: 20180525
  4. LIPITOR [Concomitant]
     Active Substance: ATORVASTATIN CALCIUM
     Route: 065
     Dates: start: 20180105

REACTIONS (6)
  - Meningitis [Recovering/Resolving]
  - Sepsis [Unknown]
  - Diarrhoea [Recovering/Resolving]
  - Altered state of consciousness [Unknown]
  - Encephalitis [Recovering/Resolving]
  - Herpes simplex encephalitis [Unknown]

NARRATIVE: CASE EVENT DATE: 20180610
